FAERS Safety Report 8106197-4 (Version None)
Quarter: 2012Q1

REPORT INFORMATION
  Report Type: 
  Country: None (occurrence: None)
  Receive Date: 20120130
  Receipt Date: 20120123
  Transmission Date: 20120608
  Serious: Yes (Other)
  Sender: FDA-Public Use
  Company Number: 1000027382

PATIENT
  Sex: Female

DRUGS (3)
  1. CAMPRAL [Suspect]
     Dosage: ORAL
     Route: 048
     Dates: start: 20110201
  2. TRAMADOL HCL [Concomitant]
  3. CITALOPRAM (CITALOPRAM HYDROBROMIDE) (CITALOPRAM HYDROBROMIDE) [Concomitant]

REACTIONS (1)
  - COLITIS MICROSCOPIC [None]
